FAERS Safety Report 19123302 (Version 2)
Quarter: 2021Q2

REPORT INFORMATION
  Report Type: Spontaneous
  Country: US (occurrence: US)
  Receive Date: 20210412
  Receipt Date: 20210429
  Transmission Date: 20210717
  Serious: Yes (Life-Threatening, Hospitalization, Disabling, Other)
  Sender: FDA-Public Use
  Company Number: US-ORGANON-O2104USA000388

PATIENT
  Age: 33 Year
  Sex: Female

DRUGS (2)
  1. BACTRIM [Concomitant]
     Active Substance: SULFAMETHOXAZOLE\TRIMETHOPRIM
     Dosage: UNK
  2. NEXPLANON [Suspect]
     Active Substance: ETONOGESTREL
     Indication: CONTRACEPTION
     Dosage: 1 IMPLANT
     Route: 059
     Dates: start: 20200128

REACTIONS (6)
  - Breast abscess [Recovered/Resolved]
  - Headache [Not Recovered/Not Resolved]
  - Breast pain [Unknown]
  - Breast pain [Not Recovered/Not Resolved]
  - Breast mass [Recovered/Resolved]
  - Paraesthesia [Not Recovered/Not Resolved]

NARRATIVE: CASE EVENT DATE: 202007
